FAERS Safety Report 20942525 (Version 1)
Quarter: 2022Q2

REPORT INFORMATION
  Report Type: Report from Study
  Country: GB (occurrence: GB)
  Receive Date: 20220610
  Receipt Date: 20220610
  Transmission Date: 20220721
  Serious: Yes (Death, Other)
  Sender: FDA-Public Use
  Company Number: GB-PFIZER INC-2019099351

PATIENT
  Age: 27 Year
  Sex: Male

DRUGS (6)
  1. ACYCLOVIR [Suspect]
     Active Substance: ACYCLOVIR
     Indication: Epstein-Barr virus associated lymphoproliferative disorder
     Dosage: 37.5 MILLIGRAM/KILOGRAM, ONCE A DAY
     Route: 065
  2. ACYCLOVIR [Suspect]
     Active Substance: ACYCLOVIR
     Indication: Monoclonal B-cell lymphocytosis
  3. LEUCOVORIN CALCIUM [Suspect]
     Active Substance: LEUCOVORIN CALCIUM
     Indication: Epstein-Barr virus associated lymphoproliferative disorder
     Dosage: UNK
     Route: 065
  4. LEUCOVORIN CALCIUM [Suspect]
     Active Substance: LEUCOVORIN CALCIUM
     Indication: Monoclonal B-cell lymphocytosis
  5. METHOTREXATE SODIUM [Suspect]
     Active Substance: METHOTREXATE SODIUM
     Indication: Epstein-Barr virus associated lymphoproliferative disorder
     Dosage: UNK
     Route: 065
  6. METHOTREXATE SODIUM [Suspect]
     Active Substance: METHOTREXATE SODIUM
     Indication: Monoclonal B-cell lymphocytosis

REACTIONS (2)
  - Hepatic failure [Fatal]
  - Renal failure [Fatal]
